FAERS Safety Report 18164370 (Version 1)
Quarter: 2020Q3

REPORT INFORMATION
  Report Type: Spontaneous
  Country: US (occurrence: US)
  Receive Date: 20200818
  Receipt Date: 20200818
  Transmission Date: 20201103
  Serious: No
  Sender: FDA-Public Use
  Company Number: US-JNJFOC-20200805527

PATIENT
  Age: 38 Year
  Sex: Female
  Weight: 77.18 kg

DRUGS (1)
  1. WOMENS ROGAINE UNSCENTED [Suspect]
     Active Substance: MINOXIDIL
     Indication: ALOPECIA
     Dosage: HALF CAPFUL,JUST OPEN IT AND SHAKE A LITTLE BIT ONCE OR TWICE A DAY, THE PATIENT LAST USED PRODUCT O
     Route: 061
     Dates: start: 20200501

REACTIONS (5)
  - Wrong technique in product usage process [Unknown]
  - Product formulation issue [Unknown]
  - Overdose [Unknown]
  - Hair texture abnormal [Not Recovered/Not Resolved]
  - Inappropriate schedule of product administration [Unknown]

NARRATIVE: CASE EVENT DATE: 202005
